FAERS Safety Report 6649501-6 (Version None)
Quarter: 2010Q1

REPORT INFORMATION
  Report Type: 
  Country: None (occurrence: None)
  Receive Date: 20100324
  Receipt Date: 20100315
  Transmission Date: 20100710
  Serious: Yes (Hospitalization)
  Sender: FDA-Public Use
  Company Number: BR-AMGEN-US391104

PATIENT
  Age: 52 Year
  Sex: Male

DRUGS (6)
  1. ENBREL [Suspect]
     Indication: DRUG USE FOR UNKNOWN INDICATION
     Route: 058
     Dates: start: 20080101
  2. PREDNISONE [Suspect]
     Route: 065
     Dates: end: 20100301
  3. PREDNISONE [Suspect]
     Dates: start: 20100301
  4. FOLIC ACID [Concomitant]
     Route: 065
  5. ATENOLOL [Concomitant]
     Indication: HYPERTENSION
     Route: 065
  6. CAPTOPRIL [Concomitant]
     Indication: HYPERTENSION
     Route: 065

REACTIONS (7)
  - AMNESIA [None]
  - BLOOD PRESSURE INCREASED [None]
  - HEPATIC FUNCTION ABNORMAL [None]
  - HYPERGLYCAEMIA [None]
  - MEMORY IMPAIRMENT [None]
  - SPEECH DISORDER [None]
  - SYNCOPE [None]
